FAERS Safety Report 6434112-8 (Version None)
Quarter: 2009Q4

REPORT INFORMATION
  Report Type: 
  Country: None (occurrence: None)
  Receive Date: 20091110
  Receipt Date: 20090717
  Transmission Date: 20100525
  Serious: No
  Sender: FDA-Public Use
  Company Number: US-ASTRAZENECA-2009SE10161

PATIENT
  Sex: Female

DRUGS (1)
  1. PRILOSEC OTC [Suspect]
     Dosage: 1 TABLET, 1 /DAY FOR 4 DAYS
     Route: 048
     Dates: start: 20090713, end: 20090716

REACTIONS (3)
  - DYSGEUSIA [None]
  - HEADACHE [None]
  - PAIN IN EXTREMITY [None]
